FAERS Safety Report 4941205-0 (Version None)
Quarter: 2006Q1

REPORT INFORMATION
  Report Type: 
  Country: None (occurrence: None)
  Receive Date: 20060310
  Receipt Date: 20060310
  Transmission Date: 20060701
  Serious: No
  Sender: FDA-Public Use
  Company Number: None

PATIENT
  Age: 19 Year
  Sex: Female

DRUGS (1)
  1. TUBERSOL [Suspect]
     Dosage: ID
     Route: 023
     Dates: start: 20050909

REACTIONS (7)
  - BALANCE DISORDER [None]
  - EYE PRURITUS [None]
  - FEELING ABNORMAL [None]
  - LACRIMATION INCREASED [None]
  - NASAL CONGESTION [None]
  - PAIN IN EXTREMITY [None]
  - RHINORRHOEA [None]
